FAERS Safety Report 25908283 (Version 1)
Quarter: 2025Q4

REPORT INFORMATION
  Report Type: Report from Study
  Country: UA (occurrence: UA)
  Receive Date: 20251010
  Receipt Date: 20251010
  Transmission Date: 20260117
  Serious: Yes (Other)
  Sender: PFIZER
  Company Number: UA-TAKEDA-2025TUS088278

PATIENT
  Age: 79 Year
  Sex: Male

DRUGS (1)
  1. ADCETRIS [Suspect]
     Active Substance: BRENTUXIMAB VEDOTIN
     Indication: Anaplastic large cell lymphoma T- and null-cell types
     Dosage: UNSPECIFIED DOSE 3 VIALS Q3WEEKS
     Route: 042
     Dates: start: 20250919

REACTIONS (2)
  - Leukopenia [Unknown]
  - Malaise [Unknown]
